FAERS Safety Report 9288322 (Version 14)
Quarter: 2013Q4

REPORT INFORMATION
  Report Type: Spontaneous
  Country: US (occurrence: US)
  Receive Date: 20130514
  Receipt Date: 20131028
  Transmission Date: 20140711
  Serious: Yes (Other)
  Sender: FDA-Public Use
  Company Number: US-PFIZER INC-2013144464

PATIENT
  Age: 64 Year
  Sex: Female
  Weight: 78.01 kg

DRUGS (2)
  1. DETROL LA [Suspect]
     Indication: HYPERTONIC BLADDER
     Dosage: 4 MG, 1X/DAY
     Route: 048
     Dates: start: 201212, end: 20130713
  2. PROPRANOLOL [Concomitant]
     Indication: HYPERTENSION
     Dosage: UNK

REACTIONS (17)
  - Urinary tract infection [Unknown]
  - Gastric ulcer [Unknown]
  - Large intestinal obstruction [Unknown]
  - Large intestine perforation [Unknown]
  - Large intestinal haemorrhage [Unknown]
  - Intestinal obstruction [Unknown]
  - Urinary retention [Unknown]
  - Gastric disorder [Unknown]
  - Medication residue present [Unknown]
  - Product size issue [Unknown]
  - Wrong technique in drug usage process [Unknown]
  - Drug ineffective [Unknown]
  - Malaise [Unknown]
  - Feeling abnormal [Unknown]
  - Dyschezia [Unknown]
  - Pain [Unknown]
  - Medication residue present [Unknown]
